FAERS Safety Report 5061225-8 (Version None)
Quarter: 2006Q3

REPORT INFORMATION
  Report Type: 
  Country: None (occurrence: None)
  Receive Date: 20060720
  Receipt Date: 20060707
  Transmission Date: 20061208
  Serious: Yes (Hospitalization, Disabling)
  Sender: FDA-Public Use
  Company Number: S06-FRA-02858-01

PATIENT
  Age: 26 Year
  Sex: Female

DRUGS (3)
  1. SEROPLEX (ESCITALOPRAM) [Suspect]
     Indication: POST-TRAUMATIC STRESS DISORDER
     Dosage: 10 MG QD PO
     Route: 048
     Dates: start: 20060628, end: 20060630
  2. XANAX [Concomitant]
  3. LANSOPRAZOLE [Concomitant]

REACTIONS (7)
  - ANXIETY [None]
  - CONFUSIONAL STATE [None]
  - DISORIENTATION [None]
  - DYSKINESIA [None]
  - SOCIAL AVOIDANT BEHAVIOUR [None]
  - TIC [None]
  - TRISMUS [None]
